FAERS Safety Report 14996345 (Version 2)
Quarter: 2019Q2

REPORT INFORMATION
  Report Type: Spontaneous
  Country: PK (occurrence: PK)
  Receive Date: 20180611
  Receipt Date: 20190405
  Transmission Date: 20190711
  Serious: Yes (Hospitalization, Other)
  Sender: FDA-Public Use
  Company Number: PK-PFIZER INC-2018229607

PATIENT
  Age: 30 Year
  Sex: Female
  Weight: 30 kg

DRUGS (17)
  1. LEVOFLOXACIN. [Suspect]
     Active Substance: LEVOFLOXACIN
     Indication: TUBERCULOSIS
     Dosage: 750 MG, 1X/DAY
     Route: 048
     Dates: start: 20180315, end: 20190207
  2. ETHIONAMIDE [Suspect]
     Active Substance: ETHIONAMIDE
     Indication: TUBERCULOSIS
     Dosage: 500 MG, 1X/DAY
     Route: 048
     Dates: start: 20180315, end: 20190207
  3. CYCLOSERINE. [Suspect]
     Active Substance: CYCLOSERINE
     Dosage: 500 MG, 1X/DAY
     Route: 048
     Dates: start: 20180330, end: 20190207
  4. VITA B6 [Concomitant]
     Indication: NEUROPATHY PERIPHERAL
     Dosage: UNK
     Dates: start: 20180315
  5. PYRAZINAMIDE. [Suspect]
     Active Substance: PYRAZINAMIDE
     Dosage: 800 MG, 1X/DAY
     Route: 048
     Dates: start: 20180315, end: 20190207
  6. ETHIONAMIDE [Suspect]
     Active Substance: ETHIONAMIDE
     Dosage: UNK
     Dates: start: 20190222
  7. PYRAZINAMIDE. [Suspect]
     Active Substance: PYRAZINAMIDE
     Indication: TUBERCULOSIS
     Dosage: 1000 MG, 1X/DAY
     Route: 048
     Dates: start: 20180315
  8. CYCLOSERINE. [Suspect]
     Active Substance: CYCLOSERINE
     Indication: TUBERCULOSIS
     Dosage: 500 MG, 1X/DAY
     Route: 048
     Dates: start: 20180315
  9. FORACORT [Concomitant]
     Active Substance: BUDESONIDE\FORMOTEROL FUMARATE
     Indication: ASTHMA
     Dosage: UNK
  10. LINEZOLID. [Suspect]
     Active Substance: LINEZOLID
     Indication: TUBERCULOSIS
     Dosage: 600 MG, 1X/DAY
     Route: 048
     Dates: start: 20180315
  11. LINEZOLID. [Suspect]
     Active Substance: LINEZOLID
     Dosage: 600 MG, 1X/DAY
     Route: 048
     Dates: start: 20180330, end: 20190207
  12. AMIKACIN. [Concomitant]
     Active Substance: AMIKACIN
     Indication: TUBERCULOSIS
     Dosage: UNK
     Dates: start: 20180315
  13. AMOXICILLIN TRIHYDRATE [Suspect]
     Active Substance: AMOXICILLIN
     Indication: TUBERCULOSIS
     Dosage: UNK, 1X/DAY
     Dates: start: 20180315
  14. LEVOFLOXACIN. [Suspect]
     Active Substance: LEVOFLOXACIN
     Dosage: UNK
     Dates: start: 20190219
  15. DELAMANID [Suspect]
     Active Substance: DELAMANID
     Indication: TUBERCULOSIS
     Dosage: 200 MG, 1X/DAY
     Route: 048
     Dates: start: 20180330, end: 20180919
  16. LINEZOLID. [Suspect]
     Active Substance: LINEZOLID
     Dosage: UNK
     Dates: start: 20190227
  17. CYCLOSERINE. [Suspect]
     Active Substance: CYCLOSERINE
     Dosage: UNK
     Dates: start: 20190219

REACTIONS (8)
  - Respiratory failure [Recovering/Resolving]
  - Dyspnoea [Recovered/Resolved]
  - Tachycardia [Unknown]
  - Cough [Recovering/Resolving]
  - Bronchiectasis [Unknown]
  - Condition aggravated [Unknown]
  - Hepatotoxicity [Recovered/Resolved]
  - Asthma [Recovered/Resolved]

NARRATIVE: CASE EVENT DATE: 20180408
